FAERS Safety Report 26213692 (Version 1)
Quarter: 2025Q4

REPORT INFORMATION
  Report Type: Report from Study
  Country: US (occurrence: US)
  Receive Date: 20251230
  Receipt Date: 20251230
  Transmission Date: 20260118
  Serious: Yes (Disabling)
  Sender: TEVA
  Company Number: US-TEVA-VS-3406250

PATIENT
  Age: 36 Year
  Sex: Male

DRUGS (2)
  1. AUSTEDO XR [Suspect]
     Active Substance: DEUTETRABENAZINE
     Indication: Schizophrenia
     Dosage: TAKE 1 TABLET BY MOUTH AT BEDTIME
     Route: 048
  2. OLANZAPINE [Concomitant]
     Active Substance: OLANZAPINE
     Indication: Product used for unknown indication

REACTIONS (2)
  - Mental disability [Not Recovered/Not Resolved]
  - Product use in unapproved indication [Unknown]
